FAERS Safety Report 6167633-6 (Version None)
Quarter: 2009Q2

REPORT INFORMATION
  Report Type: 
  Country: None (occurrence: None)
  Receive Date: 20090424
  Receipt Date: 20080313
  Transmission Date: 20091009
  Serious: Yes (Other)
  Sender: FDA-Public Use
  Company Number: PHFR2008GB01123

PATIENT
  Sex: Male

DRUGS (1)
  1. TEGRETOL [Suspect]

REACTIONS (1)
  - HYPOREFLEXIA [None]
